FAERS Safety Report 7802784-9 (Version None)
Quarter: 2011Q4

REPORT INFORMATION
  Report Type: 
  Country: None (occurrence: None)
  Receive Date: 20111007
  Receipt Date: 20110928
  Transmission Date: 20120403
  Serious: Yes (Hospitalization, Other)
  Sender: FDA-Public Use
  Company Number: DE-TEVA-303617GER

PATIENT
  Sex: Male
  Weight: 97.5 kg

DRUGS (1)
  1. COPAXONE [Suspect]
     Indication: MULTIPLE SCLEROSIS
     Dosage: 20 MILLIGRAM;
     Route: 058
     Dates: start: 20071019, end: 20110620

REACTIONS (2)
  - HEPATIC ENZYME ABNORMAL [None]
  - SARCOIDOSIS [None]
